FAERS Safety Report 15472113 (Version 2)
Quarter: 2018Q4

REPORT INFORMATION
  Report Type: Spontaneous
  Country: FI (occurrence: FI)
  Receive Date: 20181008
  Receipt Date: 20181011
  Transmission Date: 20190205
  Serious: Yes (Hospitalization, Other)
  Sender: FDA-Public Use
  Company Number: FI-TEVA-2018-FI-961308

PATIENT
  Age: 86 Year
  Sex: Female

DRUGS (1)
  1. RIVASTIGMIN RATIOPHARM [Suspect]
     Active Substance: RIVASTIGMINE
     Route: 062

REACTIONS (4)
  - Inappropriate schedule of product administration [Unknown]
  - Wrong dose [Unknown]
  - Product design issue [Unknown]
  - Atrial fibrillation [Recovered/Resolved]

NARRATIVE: CASE EVENT DATE: 201809
